FAERS Safety Report 12642993 (Version 1)
Quarter: 2016Q3

REPORT INFORMATION
  Report Type: Report from Study
  Country: US (occurrence: US)
  Receive Date: 20160811
  Receipt Date: 20160811
  Transmission Date: 20161109
  Serious: No
  Sender: FDA-Public Use
  Company Number: US-AMGEN-USASL2016102255

PATIENT
  Age: 60 Year
  Sex: Female

DRUGS (1)
  1. ENBREL [Suspect]
     Active Substance: ETANERCEPT
     Indication: RHEUMATOID ARTHRITIS
     Dosage: 50 MG, QWK
     Route: 065
     Dates: start: 20150923

REACTIONS (6)
  - Productive cough [Unknown]
  - Pain in extremity [Unknown]
  - Hypoaesthesia [Unknown]
  - Anxiety [Unknown]
  - Chest pain [Unknown]
  - Flatulence [Unknown]

NARRATIVE: CASE EVENT DATE: 2016
